FAERS Safety Report 4808795-X (Version None)
Quarter: 2005Q4

REPORT INFORMATION
  Report Type: 
  Country: None (occurrence: None)
  Receive Date: 20051021
  Receipt Date: 20020529
  Transmission Date: 20060501
  Serious: No
  Sender: FDA-Public Use
  Company Number: AU_020605091

PATIENT
  Age: 39 Year
  Sex: Male

DRUGS (3)
  1. ZYPREXA [Suspect]
     Indication: SCHIZOPHRENIA
     Dosage: 10 MG/DAY
     Dates: start: 20020522
  2. ALLOPURINOL [Concomitant]
  3. VALPROATE SODIUM [Concomitant]

REACTIONS (1)
  - NEUTROPHIL COUNT ABNORMAL [None]
